FAERS Safety Report 6846268-3 (Version None)
Quarter: 2010Q3

REPORT INFORMATION
  Report Type: 
  Country: None (occurrence: None)
  Receive Date: 20100712
  Receipt Date: 20100629
  Transmission Date: 20110219
  Serious: No
  Sender: FDA-Public Use
  Company Number: 7008901

PATIENT
  Age: 48 Year
  Sex: Female
  Weight: 63 kg

DRUGS (4)
  1. REBIF [Suspect]
     Indication: MULTIPLE SCLEROSIS
     Dosage: 44 MCG, 3 IN 1 WK, SUBCUTANEOUS
     Route: 058
     Dates: start: 20071231
  2. FLUOXETINE [Concomitant]
  3. ZOMIG [Concomitant]
  4. VITAMIN B12 [Concomitant]

REACTIONS (6)
  - BLADDER DISORDER [None]
  - BLADDER SPASM [None]
  - BLOOD URINE PRESENT [None]
  - NECK PAIN [None]
  - NEPHROLITHIASIS [None]
  - PAIN IN EXTREMITY [None]
